FAERS Safety Report 20749019 (Version 1)
Quarter: 2022Q2

REPORT INFORMATION
  Report Type: Spontaneous
  Country: FR (occurrence: FR)
  Receive Date: 20220426
  Receipt Date: 20220426
  Transmission Date: 20220721
  Serious: Yes (Hospitalization, Other)
  Sender: FDA-Public Use
  Company Number: FR-INGENUS PHARMACEUTICALS, LLC-2022INF000036

PATIENT
  Age: 59 Year
  Sex: Female

DRUGS (2)
  1. DOCETAXEL [Suspect]
     Active Substance: DOCETAXEL
     Indication: Hormone receptor positive HER2 negative breast cancer
     Dosage: 75 MILLIGRAM/SQ. METER
     Route: 065
  2. CYCLOPHOSPHAMIDE [Concomitant]
     Active Substance: CYCLOPHOSPHAMIDE
     Indication: Hormone receptor positive HER2 negative breast cancer
     Dosage: 600 MILLIGRAM/SQ. METER
     Route: 065

REACTIONS (5)
  - Systemic scleroderma [Recovering/Resolving]
  - Scleroderma renal crisis [Unknown]
  - Posterior reversible encephalopathy syndrome [Unknown]
  - Right ventricular failure [Unknown]
  - Interstitial lung disease [Unknown]
